FAERS Safety Report 24422140 (Version 1)
Quarter: 2024Q4

REPORT INFORMATION
  Report Type: Spontaneous
  Country: US (occurrence: US)
  Receive Date: 20241010
  Receipt Date: 20241010
  Transmission Date: 20250114
  Serious: Yes (Hospitalization)
  Sender: MACLEODS
  Company Number: US-MLMSERVICE-20240923-PI203704-00296-1

PATIENT

DRUGS (5)
  1. SILDENAFIL [Suspect]
     Active Substance: SILDENAFIL
     Indication: Right ventricular failure
     Dosage: ORAL SILDENAFIL 20 MG THREE TIMES DAILY
     Route: 048
  2. SILDENAFIL [Suspect]
     Active Substance: SILDENAFIL
     Indication: Pulmonary arterial hypertension
  3. OXYGEN [Concomitant]
     Active Substance: OXYGEN
     Indication: Combined pulmonary fibrosis and emphysema
     Route: 065
  4. TREPROSTINIL [Concomitant]
     Active Substance: TREPROSTINIL
     Dosage: INHALED TREPROSTINIL FOUR TIMES DAILY
  5. TREPROSTINIL [Concomitant]
     Active Substance: TREPROSTINIL
     Indication: Right ventricular failure

REACTIONS (1)
  - Acute psychosis [Recovered/Resolved]
